FAERS Safety Report 6008769-X (Version None)
Quarter: 2008Q4

REPORT INFORMATION
  Report Type: 
  Country: None (occurrence: None)
  Receive Date: 20081217
  Receipt Date: 20081217
  Transmission Date: 20090506
  Serious: Yes (Hospitalization)
  Sender: FDA-Public Use
  Company Number: None

PATIENT
  Sex: Female
  Weight: 63.6 kg

DRUGS (2)
  1. DOXORUBICIN HYDROCHLORIDE [Suspect]
     Dosage: 98 MG
  2. CYCLOPHOSPHAMIDE [Suspect]
     Dosage: 984 MG

REACTIONS (1)
  - PULMONARY EMBOLISM [None]
